FAERS Safety Report 7456867-6 (Version None)
Quarter: 2011Q2

REPORT INFORMATION
  Report Type: 
  Country: None (occurrence: None)
  Receive Date: 20110504
  Receipt Date: 20110427
  Transmission Date: 20111010
  Serious: No
  Sender: FDA-Public Use
  Company Number: US-BIOGENIDEC-2011BI015887

PATIENT
  Age: 54 Year
  Sex: Female

DRUGS (1)
  1. TYSABRI [Suspect]
     Indication: MULTIPLE SCLEROSIS
     Route: 042
     Dates: start: 20070426

REACTIONS (6)
  - INTERVERTEBRAL DISC PROTRUSION [None]
  - FATIGUE [None]
  - NECK PAIN [None]
  - OSTEOARTHRITIS [None]
  - BACK PAIN [None]
  - NEUROPATHY PERIPHERAL [None]
